FAERS Safety Report 4750122-0 (Version None)
Quarter: 2005Q3

REPORT INFORMATION
  Report Type: 
  Country: None (occurrence: None)
  Receive Date: 20050819
  Receipt Date: 20050819
  Transmission Date: 20060218
  Serious: Yes (Death, Hospitalization)
  Sender: FDA-Public Use
  Company Number: None

PATIENT
  Sex: Female
  Weight: 58 kg

DRUGS (2)
  1. ETOPOSIDE [Suspect]
     Indication: SMALL CELL LUNG CANCER STAGE UNSPECIFIED
     Dosage: SEE IMAGE
     Route: 042
     Dates: start: 20050808, end: 20050810
  2. CISPLATIN [Suspect]
     Dosage: SEE IMAGE
     Route: 042
     Dates: start: 20050808, end: 20050808

REACTIONS (10)
  - AORTIC OCCLUSION [None]
  - BODY TEMPERATURE INCREASED [None]
  - FEMORAL PULSE ABNORMAL [None]
  - INFECTION [None]
  - NEUTROPENIA [None]
  - PEDAL PULSE ABSENT [None]
  - PERIPHERAL COLDNESS [None]
  - POPLITEAL PULSE ABNORMAL [None]
  - SYNCOPE [None]
  - WHITE BLOOD CELL COUNT DECREASED [None]
